FAERS Safety Report 19659974 (Version 2)
Quarter: 2021Q3

REPORT INFORMATION
  Report Type: Spontaneous
  Country: DE (occurrence: DE)
  Receive Date: 20210805
  Receipt Date: 20210918
  Transmission Date: 20211014
  Serious: Yes (Life-Threatening, Hospitalization, Other)
  Sender: FDA-Public Use
  Company Number: DE-B.I. PHARMACEUTICALS,INC./RIDGEFIELD-2021-BI-119640

PATIENT
  Age: 55 Year
  Sex: Male
  Weight: 70 kg

DRUGS (1)
  1. JARDIANCE [Suspect]
     Active Substance: EMPAGLIFLOZIN
     Indication: TYPE 2 DIABETES MELLITUS
     Route: 048
     Dates: end: 20201127

REACTIONS (5)
  - Diabetic ketoacidosis [Unknown]
  - Hyperventilation [Unknown]
  - COVID-19 [Unknown]
  - Tachypnoea [Unknown]
  - Somnolence [Unknown]

NARRATIVE: CASE EVENT DATE: 2020
